FAERS Safety Report 6653574-4 (Version None)
Quarter: 2010Q1

REPORT INFORMATION
  Report Type: 
  Country: None (occurrence: None)
  Receive Date: 20100326
  Receipt Date: 20100323
  Transmission Date: 20100710
  Serious: Yes (Life-Threatening)
  Sender: FDA-Public Use
  Company Number: JP-ELI_LILLY_AND_COMPANY-JP201003002539

PATIENT
  Age: 85 Year
  Sex: Female

DRUGS (9)
  1. HUMALOG MIX 75/25 [Suspect]
     Indication: TYPE 1 DIABETES MELLITUS
     Dosage: 23 U, UNKNOWN
     Route: 058
     Dates: start: 20090410, end: 20100206
  2. LANTUS [Concomitant]
     Indication: TYPE 1 DIABETES MELLITUS
     Route: 058
     Dates: start: 20090901
  3. PRAVASTATIN SODIUM [Concomitant]
     Dosage: UNK, UNKNOWN
     Route: 065
  4. NIFEDIPINE [Concomitant]
     Dosage: UNK, UNKNOWN
     Route: 065
  5. AMBROXOL HYDROCHLORIDE [Concomitant]
     Dosage: UNK, UNKNOWN
     Route: 065
  6. DICYCLOMINE HYDROCHLORIDE [Concomitant]
     Dosage: UNK, UNKNOWN
     Route: 065
  7. FEXOFENADINE HCL [Concomitant]
     Dosage: UNK, UNKNOWN
     Route: 065
  8. LEVOFLOXACIN [Concomitant]
     Dosage: UNK, UNKNOWN
     Route: 065
  9. LEVOFLOXACIN [Concomitant]
     Dosage: UNK, UNKNOWN
     Route: 065

REACTIONS (1)
  - HYPERGLYCAEMIA [None]
